FAERS Safety Report 20063173 (Version 2)
Quarter: 2021Q4

REPORT INFORMATION
  Report Type: Spontaneous
  Country: TR (occurrence: TR)
  Receive Date: 20211112
  Receipt Date: 20211122
  Transmission Date: 20220303
  Serious: Yes (Death)
  Sender: FDA-Public Use
  Company Number: TR-009507513-2111TUR001641

PATIENT
  Age: 71 Year
  Sex: Male

DRUGS (13)
  1. CASPOFUNGIN ACETATE [Suspect]
     Active Substance: CASPOFUNGIN ACETATE
     Indication: Candida infection
     Dosage: 70 MILLIGRAM, ONCE; LOADING DOSE
     Dates: start: 202011, end: 202011
  2. CASPOFUNGIN ACETATE [Suspect]
     Active Substance: CASPOFUNGIN ACETATE
     Indication: Systemic candida
     Dosage: 50 MILLIGRAM, QD
     Dates: start: 202011
  3. CASPOFUNGIN ACETATE [Suspect]
     Active Substance: CASPOFUNGIN ACETATE
     Indication: Candida infection
  4. VANCOMYCIN [Concomitant]
     Active Substance: VANCOMYCIN
     Indication: Systemic candida
     Dosage: 1 GRAM, BID, LOADING DOSE
     Dates: start: 202011, end: 202011
  5. VANCOMYCIN [Concomitant]
     Active Substance: VANCOMYCIN
     Indication: Candida infection
     Dosage: 1 X 1 G/48 HOUR STARTING FROM THE THIRD DAY
     Dates: start: 202011
  6. VANCOMYCIN [Concomitant]
     Active Substance: VANCOMYCIN
     Indication: Candida infection
  7. MEROPENEM [Concomitant]
     Active Substance: MEROPENEM
     Indication: Candida infection
     Dosage: 1 GRAM, TID
     Dates: start: 202011
  8. MEROPENEM [Concomitant]
     Active Substance: MEROPENEM
     Indication: Candida infection
  9. MEROPENEM [Concomitant]
     Active Substance: MEROPENEM
     Indication: Systemic candida
  10. FAVIPIRAVIR [Concomitant]
     Active Substance: FAVIPIRAVIR
     Indication: COVID-19
     Dosage: 600 MILLIGRAM, BID
     Dates: start: 2020
  11. DEXAMETHASONE [Concomitant]
     Active Substance: DEXAMETHASONE
     Indication: COVID-19
     Dosage: 6 MILLIGRAM, QD
     Route: 042
     Dates: start: 2020
  12. PIPERACILLIN AND TAZOBACTAM [Concomitant]
     Active Substance: PIPERACILLIN SODIUM\TAZOBACTAM SODIUM
     Indication: COVID-19
     Dosage: 4.5 GRAM, TID
     Route: 042
     Dates: start: 20201118
  13. CIPROFLOXACIN [Concomitant]
     Active Substance: CIPROFLOXACIN
     Indication: COVID-19
     Dosage: 2X400
     Route: 042
     Dates: start: 20201118

REACTIONS (1)
  - Drug ineffective [Fatal]

NARRATIVE: CASE EVENT DATE: 20201101
